FAERS Safety Report 5945766-4 (Version None)
Quarter: 2008Q4

REPORT INFORMATION
  Report Type: 
  Country: None (occurrence: None)
  Receive Date: 20081106
  Receipt Date: 20081024
  Transmission Date: 20090506
  Serious: Yes (Death)
  Sender: FDA-Public Use
  Company Number: MC200700424

PATIENT
  Age: 83 Year
  Sex: Male
  Weight: 68 kg

DRUGS (2)
  1. ANGIOMAX [Suspect]
     Indication: PERCUTANEOUS CORONARY INTERVENTION
     Dosage: 10.5 MG, BOLUS, IV BOLUS;  2 25 MG, HR, INTRAVENOUS
     Route: 040
     Dates: start: 20070216, end: 20070216
  2. ANGIOMAX [Suspect]
     Indication: PERCUTANEOUS CORONARY INTERVENTION
     Dosage: 10.5 MG, BOLUS, IV BOLUS;  2 25 MG, HR, INTRAVENOUS
     Route: 040
     Dates: start: 20070216, end: 20070216

REACTIONS (4)
  - BRADYCARDIA [None]
  - CARDIAC ARREST [None]
  - HYPOTENSION [None]
  - PROCEDURAL COMPLICATION [None]
